FAERS Safety Report 17750424 (Version 8)
Quarter: 2024Q1

REPORT INFORMATION
  Report Type: Spontaneous
  Country: CN (occurrence: CN)
  Receive Date: 20200506
  Receipt Date: 20240125
  Transmission Date: 20240410
  Serious: Yes (Hospitalization, Other)
  Sender: FDA-Public Use
  Company Number: CN-PFIZER INC-2020176772

PATIENT
  Age: 64 Year
  Sex: Male

DRUGS (15)
  1. METHYLPREDNISOLONE SODIUM SUCCINATE [Suspect]
     Active Substance: METHYLPREDNISOLONE SODIUM SUCCINATE
     Indication: Colitis ulcerative
     Dosage: 40 MG DAILY FOR 2 WEEKS
     Route: 042
     Dates: start: 20190118
  2. METHYLPREDNISOLONE SODIUM SUCCINATE [Suspect]
     Active Substance: METHYLPREDNISOLONE SODIUM SUCCINATE
     Dosage: 60 MG, DAILY (INCREASED ) (INTRAVENOUS DRIP FOR 1 WEEK))
     Route: 042
     Dates: start: 20190118
  3. METHYLPREDNISOLONE SODIUM SUCCINATE [Suspect]
     Active Substance: METHYLPREDNISOLONE SODIUM SUCCINATE
     Dosage: 40 MG, DAILY (INTRAVENOUS DRIP FOR 10 DAYS.)
     Route: 042
     Dates: start: 20190118
  4. METHYLPREDNISOLONE [Suspect]
     Active Substance: METHYLPREDNISOLONE
     Indication: Colitis ulcerative
     Dosage: UNK
     Route: 048
  5. METHYLPREDNISOLONE [Suspect]
     Active Substance: METHYLPREDNISOLONE
     Dosage: 40 MG, DAILY FOR 2 WEEKS
     Route: 048
     Dates: start: 20190118
  6. METHYLPREDNISOLONE [Suspect]
     Active Substance: METHYLPREDNISOLONE
     Dosage: 4 MG/DAY EVERY 10 TO 14 DAYS UNTIL REACHING 16 MG
     Route: 048
     Dates: start: 20190118
  7. METHYLPREDNISOLONE [Suspect]
     Active Substance: METHYLPREDNISOLONE
     Dosage: 2 MG/DAY EVERY 2 WEEKS
     Route: 048
     Dates: start: 20190118
  8. METHYLPREDNISOLONE [Suspect]
     Active Substance: METHYLPREDNISOLONE
     Dosage: 14 MG, DAILY
     Route: 048
     Dates: start: 201907
  9. METHYLPREDNISOLONE [Suspect]
     Active Substance: METHYLPREDNISOLONE
     Dosage: 24 MG, DAILY (INCREASED )
     Route: 048
     Dates: start: 201907
  10. AZATHIOPRINE [Concomitant]
     Active Substance: AZATHIOPRINE
     Indication: Colitis ulcerative
     Dosage: UNK
  11. MERCAPTOPURINE [Concomitant]
     Active Substance: MERCAPTOPURINE
     Indication: Colitis ulcerative
     Dosage: UNK
  12. METHOTREXATE [Concomitant]
     Active Substance: METHOTREXATE
     Indication: Colitis ulcerative
     Dosage: UNK
  13. CYCLOSPORINE [Concomitant]
     Active Substance: CYCLOSPORINE
     Indication: Colitis ulcerative
     Dosage: UNK
  14. MESALAMINE [Concomitant]
     Active Substance: MESALAMINE
     Indication: Colitis ulcerative
     Dosage: 4 G, DAILY
     Route: 048
  15. GANCICLOVIR [Concomitant]
     Active Substance: GANCICLOVIR
     Indication: Cytomegalovirus infection
     Dosage: UNK

REACTIONS (2)
  - Kaposi^s sarcoma [Recovering/Resolving]
  - Human herpesvirus 8 infection [Recovering/Resolving]
